FAERS Safety Report 5465537-5 (Version None)
Quarter: 2007Q3

REPORT INFORMATION
  Report Type: 
  Country: None (occurrence: None)
  Receive Date: 20070919
  Receipt Date: 20070905
  Transmission Date: 20080115
  Serious: Yes (Congenital Anomaly)
  Sender: FDA-Public Use
  Company Number: 161014ISR

PATIENT
  Sex: 0

DRUGS (2)
  1. CARBAMAZEPINE [Suspect]
     Indication: EPILEPSY
     Dosage: 650 MG, TRANSPLACENTAL
     Route: 064
  2. PHENOBARBITAL TAB [Suspect]
     Indication: EPILEPSY
     Dosage: 130 MG, TRANSPLACENTAL
     Route: 064

REACTIONS (4)
  - CAESAREAN SECTION [None]
  - CONGENITAL CYSTIC KIDNEY DISEASE [None]
  - DRUG EXPOSURE DURING PREGNANCY [None]
  - HYPERTELORISM OF ORBIT [None]
